FAERS Safety Report 8532806 (Version 2)
Quarter: 2012Q4

REPORT INFORMATION
  Report Type: 
  Country: PT (occurrence: PT)
  Receive Date: 20120426
  Receipt Date: 20121024
  Transmission Date: 20130627
  Serious: Yes (Death, Hospitalization)
  Sender: FDA-Public Use
  Company Number: PT-BAXTER-2012BAX001550

PATIENT
  Age: 71 Year
  Sex: Female

DRUGS (4)
  1. ENDOXAN [Suspect]
     Indication: POLYARTERITIS NODOSA
     Route: 042
     Dates: start: 20111206, end: 20111227
  2. ENDOXAN [Suspect]
     Dosage: Primeira utiliza??o
     Route: 042
     Dates: start: 20111206, end: 20111227
  3. PREDNISOLONE [Concomitant]
     Indication: POLYARTERITIS NODOSA
     Route: 048
     Dates: start: 201108, end: 201202
  4. PREDNISOLONE [Concomitant]
     Route: 048
     Dates: start: 20111206, end: 20111227

REACTIONS (1)
  - Pneumonitis [Fatal]
